FAERS Safety Report 12259627 (Version 1)
Quarter: 2016Q2

REPORT INFORMATION
  Report Type: Spontaneous
  Country: US (occurrence: US)
  Receive Date: 20160412
  Receipt Date: 20160412
  Transmission Date: 20160815
  Serious: No
  Sender: FDA-Public Use
  Company Number: US-SA-2015SA101215

PATIENT
  Sex: Female
  Weight: 64 kg

DRUGS (3)
  1. PROCARDIA XL [Suspect]
     Active Substance: NIFEDIPINE
     Indication: BLOOD PRESSURE MEASUREMENT
     Dosage: ROUTE- BY MOUTH?PRODUCT START DATE- 10 YEARS AGO
  2. ALLEGRA [Suspect]
     Active Substance: FEXOFENADINE HYDROCHLORIDE
     Indication: MULTIPLE ALLERGIES
     Route: 065
  3. BENADRYL [Concomitant]
     Active Substance: DIPHENHYDRAMINE HYDROCHLORIDE
     Dosage: SHE CURRENTLY TAKES HALF A BENADRYL AS NEEDED
     Route: 065

REACTIONS (8)
  - Feeling abnormal [Unknown]
  - Drug ineffective [Unknown]
  - Hypersensitivity [Not Recovered/Not Resolved]
  - Mobility decreased [Unknown]
  - Gait disturbance [Recovering/Resolving]
  - Vertigo positional [Not Recovered/Not Resolved]
  - Hyperkeratosis [Unknown]
  - Balance disorder [Not Recovered/Not Resolved]
